FAERS Safety Report 16247432 (Version 1)
Quarter: 2019Q2

REPORT INFORMATION
  Report Type: Spontaneous
  Country: JP (occurrence: JP)
  Receive Date: 20190428
  Receipt Date: 20190428
  Transmission Date: 20190711
  Serious: Yes (Hospitalization)
  Sender: FDA-Public Use
  Company Number: JP-CONCORDIA PHARMACEUTICALS INC.-E2B_00007939

PATIENT
  Age: 79 Year
  Sex: Male

DRUGS (10)
  1. ZONISAMIDE CAPSULE [Suspect]
     Active Substance: ZONISAMIDE
     Indication: PARKINSON^S DISEASE
     Route: 048
     Dates: start: 2014, end: 20150621
  2. PERORIC [Concomitant]
     Active Substance: DOMPERIDONE
     Indication: NAUSEA
     Dosage: 30 MILLIGRAMS
     Route: 048
     Dates: start: 20160805
  3. DOPACOL [Concomitant]
     Active Substance: CARBIDOPA\LEVODOPA
     Indication: PARKINSON^S DISEASE
     Dosage: 600 MILLIGRAMS
     Route: 048
     Dates: start: 20151002
  4. ZONISAMIDE CAPSULE [Suspect]
     Active Substance: ZONISAMIDE
     Dosage: 50 MG
     Route: 048
     Dates: start: 20150622, end: 20161207
  5. LANSOPRAZOLE. [Concomitant]
     Active Substance: LANSOPRAZOLE
     Indication: DUODENAL ULCER
     Dosage: 30 MILLIGRAM
     Route: 048
     Dates: start: 20160906
  6. MAGMITT [Concomitant]
     Active Substance: MAGNESIUM OXIDE
     Indication: CONSTIPATION
     Dosage: 990 MG
     Route: 048
  7. THYRADIN S [Concomitant]
     Active Substance: LEVOTHYROXINE SODIUM
     Indication: HYPOTHYROIDISM
     Dosage: 100 MICROGRAMS
     Route: 048
  8. ROZEREM [Concomitant]
     Active Substance: RAMELTEON
     Indication: INSOMNIA
     Dosage: 8 MILLIGRAMS
     Route: 048
  9. NEUPRO [Concomitant]
     Active Substance: ROTIGOTINE
     Indication: PARKINSON^S DISEASE
     Dosage: 4.5 MILLIGRAM
     Route: 048
     Dates: start: 20150525
  10. ENTACAPONE. [Concomitant]
     Active Substance: ENTACAPONE
     Indication: PARKINSON^S DISEASE
     Dosage: 600 MILLIGRAMS
     Route: 048
     Dates: start: 20160906

REACTIONS (1)
  - Calculus urinary [Unknown]

NARRATIVE: CASE EVENT DATE: 20160717
